FAERS Safety Report 8119155 (Version 2)
Quarter: 2016Q4

REPORT INFORMATION
  Report Type: Spontaneous
  Country: JP (occurrence: JP)
  Receive Date: 20110902
  Receipt Date: 20161007
  Transmission Date: 20170207
  Serious: Yes (Hospitalization, Other)
  Sender: FDA-Public Use
  Company Number: JP-GLAXOSMITHKLINE-B0657636A

PATIENT
  Age: 43 Year
  Sex: Female

DRUGS (6)
  1. LAMOTRIGINE. [Suspect]
     Active Substance: LAMOTRIGINE
     Indication: BIPOLAR DISORDER
     Route: 048
     Dates: start: 20100423, end: 20100506
  2. ROHYPNOL [Concomitant]
     Active Substance: FLUNITRAZEPAM
     Indication: BIPOLAR DISORDER
     Route: 048
     Dates: start: 20100507, end: 20100523
  3. LIMAS [Concomitant]
     Active Substance: LITHIUM CARBONATE
     Indication: BIPOLAR DISORDER
     Route: 048
     Dates: start: 20090515, end: 20100523
  4. DEPAKENE [Concomitant]
     Active Substance: VALPROIC ACID
     Indication: BIPOLAR DISORDER
     Route: 048
     Dates: start: 20091224, end: 20100523
  5. PURSENNID [Concomitant]
     Active Substance: SENNOSIDES A AND B
     Indication: CONSTIPATION
     Route: 048
     Dates: start: 20090807, end: 20100523
  6. LAMOTRIGINE. [Suspect]
     Active Substance: LAMOTRIGINE
     Route: 048
     Dates: start: 20100507, end: 20100520

REACTIONS (30)
  - Skin erosion [Unknown]
  - Swelling face [Unknown]
  - Dyskinesia [Unknown]
  - Oral mucosal erythema [Unknown]
  - Aspartate aminotransferase increased [Unknown]
  - Paraesthesia oral [Unknown]
  - Drug eruption [Unknown]
  - Conjunctival hyperaemia [Unknown]
  - Blister [Unknown]
  - Alanine aminotransferase increased [Unknown]
  - Blood urea increased [Unknown]
  - Corneal erosion [Unknown]
  - Lip ulceration [Unknown]
  - Eating disorder [Unknown]
  - Rash [Unknown]
  - Lymphocyte stimulation test positive [Unknown]
  - Stevens-Johnson syndrome [Recovering/Resolving]
  - Pyrexia [Unknown]
  - Conjunctivitis [Unknown]
  - Amylase increased [Unknown]
  - Gamma-glutamyltransferase decreased [Unknown]
  - Pharyngeal erythema [Unknown]
  - Eyelid function disorder [Unknown]
  - C-reactive protein increased [Unknown]
  - Blood lactate dehydrogenase increased [Unknown]
  - Lip swelling [Unknown]
  - Pain [Unknown]
  - White blood cell count increased [Unknown]
  - Unevaluable event [Unknown]
  - Keratitis [Unknown]

NARRATIVE: CASE EVENT DATE: 20100507
